FAERS Safety Report 5391879-8 (Version None)
Quarter: 2007Q3

REPORT INFORMATION
  Report Type: 
  Country: None (occurrence: None)
  Receive Date: 20070718
  Receipt Date: 20070705
  Transmission Date: 20080115
  Serious: Yes (Other)
  Sender: FDA-Public Use
  Company Number: T200700767

PATIENT
  Age: 22 Year
  Sex: Female

DRUGS (2)
  1. OPTIRAY 300 [Suspect]
     Indication: COMPUTERISED TOMOGRAM
     Dosage: 100 ML, SINGLE, INTRAVENOUS
     Route: 042
     Dates: start: 20070703, end: 20070703
  2. YASMIN [Concomitant]

REACTIONS (5)
  - COUGH [None]
  - ERYTHEMA [None]
  - THROAT IRRITATION [None]
  - URTICARIA [None]
  - VOMITING [None]
